FAERS Safety Report 9801648 (Version 2)
Quarter: 2014Q1

REPORT INFORMATION
  Report Type: Spontaneous
  Country: JP (occurrence: JP)
  Receive Date: 20140107
  Receipt Date: 20140128
  Transmission Date: 20141002
  Serious: Yes (Other)
  Sender: FDA-Public Use
  Company Number: JP-BRISTOL-MYERS SQUIBB COMPANY-19960954

PATIENT
  Age: 45 Year
  Sex: Female

DRUGS (11)
  1. METGLUCO [Suspect]
     Indication: DIABETES MELLITUS
     Dosage: LATER THE DOSE WAS 1000MG?25NOV13-02DEC13?03DEC13-18DEC13
     Route: 048
     Dates: start: 20131125, end: 20131218
  2. CRESTOR [Suspect]
     Route: 048
  3. OLMETEC [Suspect]
     Indication: HYPERTENSION
     Dosage: 1DF = 5 MG AND 20MG?10 MG
     Route: 048
     Dates: start: 20131119, end: 20131218
  4. PLAVIX [Suspect]
     Indication: CEREBRAL INFARCTION
     Route: 048
     Dates: start: 20131107, end: 20131218
  5. BAYASPIRIN [Suspect]
     Indication: CEREBRAL INFARCTION
     Dosage: 07NOV2013-07NOV2013?09NOV13-15NOV13
     Route: 048
     Dates: start: 20131107, end: 20131115
  6. PLETAAL [Suspect]
     Dosage: 7NOV13-11NOV13?11NOV13-18NOV13 100 MG?06JAN14-
     Route: 048
     Dates: start: 20131107
  7. NEXIUM [Suspect]
     Route: 048
     Dates: start: 20131107, end: 20131218
  8. LIPITOR [Suspect]
     Indication: DYSLIPIDAEMIA
     Route: 048
     Dates: start: 20131108, end: 20131218
  9. LOXOMARIN [Suspect]
     Indication: HEADACHE
     Route: 048
     Dates: start: 20131109, end: 20131223
  10. LANTUS [Concomitant]
     Indication: DIABETES MELLITUS
     Dosage: 8NO13-10NO13 6 IU?11NO-12NO13 10IU?3DE-17DE13 10 IU?13NO-14NO13 14IU
     Route: 058
     Dates: start: 20131108, end: 20131202
  11. ELCATONIN [Concomitant]
     Route: 058
     Dates: start: 20131129, end: 20131213

REACTIONS (1)
  - Leukopenia [Recovered/Resolved]
